FAERS Safety Report 5199042-0 (Version None)
Quarter: 2006Q4

REPORT INFORMATION
  Report Type: 
  Country: None (occurrence: None)
  Receive Date: 20060919
  Receipt Date: 20050729
  Transmission Date: 20070319
  Serious: Yes (Other)
  Sender: FDA-Public Use
  Company Number: HQWYE678203AUG05

PATIENT
  Age: 79 Year
  Sex: Female
  Weight: 44.95 kg

DRUGS (4)
  1. ADVIL [Suspect]
     Indication: PAIN
     Dosage: 2 LIQUI0GELS ONE TIME, ORAL
     Route: 048
     Dates: start: 20050728, end: 20050728
  2. NORVASC [Concomitant]
  3. TOPROL-XL [Concomitant]
  4. FOSAMAX [Concomitant]

REACTIONS (2)
  - DYSPHAGIA [None]
  - THROAT IRRITATION [None]
